FAERS Safety Report 18651872 (Version 1)
Quarter: 2020Q4

REPORT INFORMATION
  Report Type: Spontaneous
  Country: FR (occurrence: FR)
  Receive Date: 20201222
  Receipt Date: 20201222
  Transmission Date: 20210114
  Serious: Yes (Other)
  Sender: FDA-Public Use
  Company Number: FR-LEO PHARMA-333837

PATIENT
  Age: 44 Year
  Sex: Female

DRUGS (3)
  1. PROTOPIC [Suspect]
     Active Substance: TACROLIMUS
     Indication: DERMATOSIS
     Route: 003
     Dates: start: 2005, end: 2018
  2. LOCOID [Suspect]
     Active Substance: HYDROCORTISONE BUTYRATE
     Indication: DERMATOSIS
     Route: 003
     Dates: start: 2005, end: 2018
  3. DIPROSONE [Suspect]
     Active Substance: BETAMETHASONE DIPROPIONATE
     Indication: DERMATOSIS
     Route: 003
     Dates: start: 2005, end: 2018

REACTIONS (1)
  - Steroid withdrawal syndrome [Recovering/Resolving]

NARRATIVE: CASE EVENT DATE: 2018
